FAERS Safety Report 16360318 (Version 2)
Quarter: 2025Q3

REPORT INFORMATION
  Report Type: Spontaneous
  Country: EU (occurrence: EU)
  Receive Date: 20190528
  Receipt Date: 20250715
  Transmission Date: 20251021
  Serious: Yes (Death, Life-Threatening, Other)
  Sender: AUROBINDO
  Company Number: EU-AUROBINDO-AUR-APL-2019-028281

PATIENT
  Age: 67 Year
  Sex: Female

DRUGS (6)
  1. ASPIRIN [Suspect]
     Active Substance: ASPIRIN
     Indication: Ischaemia
     Route: 065
  2. ASPIRIN [Suspect]
     Active Substance: ASPIRIN
     Indication: Thrombosis
  3. ASPIRIN [Suspect]
     Active Substance: ASPIRIN
     Indication: Aneurysm
  4. CLOPIDOGREL [Suspect]
     Active Substance: CLOPIDOGREL BISULFATE
     Indication: Aneurysm
     Route: 065
  5. CLOPIDOGREL [Suspect]
     Active Substance: CLOPIDOGREL BISULFATE
     Indication: Ischaemia
  6. CLOPIDOGREL [Suspect]
     Active Substance: CLOPIDOGREL BISULFATE
     Indication: Thrombosis

REACTIONS (5)
  - Drug ineffective [Fatal]
  - Subarachnoid haemorrhage [Unknown]
  - Amnestic disorder [Unknown]
  - Gaze palsy [Unknown]
  - Hemiparesis [Unknown]
